FAERS Safety Report 9993350 (Version 1)
Quarter: 2014Q1

REPORT INFORMATION
  Report Type: Spontaneous
  Country: CA (occurrence: CA)
  Receive Date: 20140310
  Receipt Date: 20140310
  Transmission Date: 20141002
  Serious: Yes (Other)
  Sender: FDA-Public Use
  Company Number: CA-IAC JAPAN XML-CAN-2014-0004734

PATIENT
  Age: 84 Year
  Sex: Female

DRUGS (1)
  1. BUTRANS TRANSDERMAL PATCH - 10 MCG/HR [Suspect]
     Indication: BACK PAIN
     Dosage: 10 MCG/HR, UNK
     Route: 065

REACTIONS (1)
  - Delirium [Unknown]
